FAERS Safety Report 8837505 (Version 1)
Quarter: 2012Q4

REPORT INFORMATION
  Report Type: 
  Country: IT (occurrence: IT)
  Receive Date: 20121012
  Receipt Date: 20121012
  Transmission Date: 20130627
  Serious: Yes (Hospitalization)
  Sender: FDA-Public Use
  Company Number: IT-PFIZER INC-2012252897

PATIENT
  Age: 56 Year
  Sex: Female

DRUGS (1)
  1. CARDURA [Suspect]
     Dosage: UNK
     Dates: start: 20090701, end: 20121006

REACTIONS (3)
  - Loss of consciousness [Recovering/Resolving]
  - Nausea [Recovering/Resolving]
  - Presyncope [Recovering/Resolving]
